FAERS Safety Report 9115835 (Version 1)
Quarter: 2013Q1

REPORT INFORMATION
  Report Type: Report from Study
  Country: US (occurrence: US)
  Receive Date: 20130224
  Receipt Date: 20130224
  Transmission Date: 20140127
  Serious: Yes (Hospitalization)
  Sender: FDA-Public Use
  Company Number: US-ELI_LILLY_AND_COMPANY-US201302008039

PATIENT
  Age: 76 Year
  Sex: Male

DRUGS (3)
  1. GEMCITABINE HYDROCHLORIDE [Suspect]
     Indication: BLADDER CANCER
     Dosage: UNK UNK, CYCLIC
     Dates: start: 20100624
  2. SUNITINIB MALATE [Suspect]
     Indication: BLADDER CANCER
     Dosage: UNK UNK, CYCLIC
     Route: 048
     Dates: start: 20100624
  3. CISPLATIN [Suspect]
     Indication: BLADDER CANCER
     Dosage: UNK UNK, CYCLIC
     Dates: start: 20100624

REACTIONS (1)
  - Cellulitis of male external genital organ [Unknown]
